FAERS Safety Report 23213742 (Version 1)
Quarter: 2023Q4

REPORT INFORMATION
  Report Type: Spontaneous
  Country: GB (occurrence: GB)
  Receive Date: 20231121
  Receipt Date: 20231121
  Transmission Date: 20240109
  Serious: Yes (Other)
  Sender: FDA-Public Use
  Company Number: None

PATIENT
  Age: 28 Year
  Sex: Female

DRUGS (6)
  1. ELEXACAFTOR\IVACAFTOR\TEZACAFTOR [Suspect]
     Active Substance: ELEXACAFTOR\IVACAFTOR\TEZACAFTOR
     Indication: Cystic fibrosis
     Dosage: 2 TABLETS IN MORNING
     Route: 048
     Dates: start: 2020
  2. KALYDECO [Suspect]
     Active Substance: IVACAFTOR
     Indication: Cystic fibrosis
     Dosage: ONE TABLET IN THE EVENING
     Route: 048
     Dates: start: 2020
  3. DESOGESTREL [Concomitant]
     Active Substance: DESOGESTREL
     Indication: Endometriosis
     Dates: start: 2021
  4. CREON [Concomitant]
     Active Substance: PANCRELIPASE AMYLASE\PANCRELIPASE LIPASE\PANCRELIPASE PROTEASE
     Indication: Cystic fibrosis
  5. PULMOZYME [Concomitant]
     Active Substance: DORNASE ALFA
     Indication: Cystic fibrosis
  6. FLUTICASONE FUROATE\VILANTEROL TRIFENATATE [Concomitant]
     Active Substance: FLUTICASONE FUROATE\VILANTEROL TRIFENATATE
     Indication: Cystic fibrosis

REACTIONS (4)
  - Panic attack [Recovering/Resolving]
  - Anxiety [Recovering/Resolving]
  - Fatigue [Recovering/Resolving]
  - Depressed mood [Recovering/Resolving]

NARRATIVE: CASE EVENT DATE: 20230701
